FAERS Safety Report 18011841 (Version 1)
Quarter: 2020Q3

REPORT INFORMATION
  Report Type: Report from Study
  Country: None (occurrence: CA)
  Receive Date: 20200713
  Receipt Date: 20200713
  Transmission Date: 20201103
  Serious: Yes (Hospitalization)
  Sender: FDA-Public Use
  Company Number: CA-ABBVIE-20K-028-3478018-00

PATIENT
  Sex: Male

DRUGS (1)
  1. HUMIRA [Suspect]
     Active Substance: ADALIMUMAB
     Indication: RHEUMATOID ARTHRITIS
     Route: 058
     Dates: start: 20120813

REACTIONS (5)
  - Headache [Not Recovered/Not Resolved]
  - Haemorrhage [Unknown]
  - Skull fracture [Unknown]
  - Brain oedema [Unknown]
  - Concussion [Unknown]
